FAERS Safety Report 8593898-7 (Version None)
Quarter: 2012Q3

REPORT INFORMATION
  Report Type: 
  Country: None (occurrence: None)
  Receive Date: 20120814
  Receipt Date: 20120803
  Transmission Date: 20120928
  Serious: No
  Sender: FDA-Public Use
  Company Number: US-ASTRAZENECA-2012SE55131

PATIENT
  Sex: Female

DRUGS (4)
  1. NEXIUM [Suspect]
     Dosage: AS NEEDED
     Route: 048
  2. NEXIUM [Suspect]
     Dosage: EVERY OTHER DAY
     Route: 048
  3. PRILOSEC [Suspect]
     Indication: GASTROOESOPHAGEAL REFLUX DISEASE
     Route: 048
  4. NEXIUM [Suspect]
     Dosage: EVERYDAY
     Route: 048

REACTIONS (2)
  - INTENTIONAL DRUG MISUSE [None]
  - DRUG INEFFECTIVE [None]
